FAERS Safety Report 7017674-1 (Version None)
Quarter: 2010Q3

REPORT INFORMATION
  Report Type: 
  Country: None (occurrence: None)
  Receive Date: 20100928
  Receipt Date: 20100922
  Transmission Date: 20110219
  Serious: Yes (Death)
  Sender: FDA-Public Use
  Company Number: US-CUBIST-2010S1001394

PATIENT

DRUGS (5)
  1. CUBICIN [Suspect]
     Indication: BACTERAEMIA
  2. CUBICIN [Suspect]
     Indication: ENDOCARDITIS
  3. VANCOMYCIN [Concomitant]
     Indication: PRODUCT USED FOR UNKNOWN INDICATION
  4. SYNERCID [Concomitant]
     Indication: PRODUCT USED FOR UNKNOWN INDICATION
  5. LINEZOLID [Concomitant]
     Indication: PRODUCT USED FOR UNKNOWN INDICATION

REACTIONS (3)
  - DEATH [None]
  - DRUG INEFFECTIVE [None]
  - PATHOGEN RESISTANCE [None]
